FAERS Safety Report 5293179-3 (Version None)
Quarter: 2007Q2

REPORT INFORMATION
  Report Type: 
  Country: None (occurrence: None)
  Receive Date: 20070411
  Receipt Date: 20070405
  Transmission Date: 20071010
  Serious: Yes (Other)
  Sender: FDA-Public Use
  Company Number: AT-JNJFOC-20070401062

PATIENT
  Age: 26 Year
  Sex: Female

DRUGS (2)
  1. TOPAMAX [Suspect]
     Route: 065
     Dates: start: 20070301
  2. TOPAMAX [Suspect]
     Indication: EPILEPSY
     Route: 065
     Dates: start: 20070301

REACTIONS (2)
  - LACRIMATION INCREASED [None]
  - VISUAL ACUITY REDUCED [None]
